FAERS Safety Report 8906358 (Version 1)
Quarter: 2012Q4

REPORT INFORMATION
  Report Type: Spontaneous
  Country: US (occurrence: None)
  Receive Date: 20121108
  Receipt Date: 20121108
  Transmission Date: 20130627
  Serious: Yes (Other)
  Sender: FDA-Public Use
  Company Number: AXC-2012-000518

PATIENT
  Age: 36 Year
  Sex: Male

DRUGS (4)
  1. MESALAMINE [Suspect]
     Indication: CROHN^S DISEASE
  2. MESALAMINE [Suspect]
     Indication: CROHN^S DISEASE
  3. INFLIXIMAB [Suspect]
     Indication: CROHN^S DISEASE
     Dosage: 10 mg/kg every 4 weeks, Unknown
  4. AZATHIOPRINE [Suspect]
     Indication: CROHN^S DISEASE

REACTIONS (3)
  - Lymphoma [None]
  - Diffuse large B-cell lymphoma [None]
  - Colonic stenosis [None]
